FAERS Safety Report 20736583 (Version 3)
Quarter: 2022Q3

REPORT INFORMATION
  Report Type: Spontaneous
  Country: US (occurrence: US)
  Receive Date: 20220421
  Receipt Date: 20220817
  Transmission Date: 20221026
  Serious: No
  Sender: FDA-Public Use
  Company Number: US-PFIZER INC-202200584218

PATIENT
  Age: 74 Year
  Sex: Female
  Weight: 63.96 kg

DRUGS (2)
  1. PAXLOVID [Suspect]
     Active Substance: NIRMATRELVIR\RITONAVIR
     Indication: COVID-19 treatment
     Dosage: BLISTER PACK 3 IN THE MORNING AND NIGHT ONE
     Dates: start: 20220413
  2. PAROXETINE [Concomitant]
     Active Substance: PAROXETINE
     Indication: Depression
     Dosage: 10 MG
     Dates: start: 202107

REACTIONS (6)
  - Taste disorder [Unknown]
  - Balance disorder [Unknown]
  - Peripheral coldness [Unknown]
  - Fear [Unknown]
  - Nausea [Not Recovered/Not Resolved]
  - Vomiting [Not Recovered/Not Resolved]

NARRATIVE: CASE EVENT DATE: 20220413
